FAERS Safety Report 23941101 (Version 1)
Quarter: 2024Q2

REPORT INFORMATION
  Report Type: Spontaneous
  Country: US (occurrence: US)
  Receive Date: 20240605
  Receipt Date: 20240605
  Transmission Date: 20240716
  Serious: No
  Sender: FDA-Public Use
  Company Number: US-AZURITY PHARMACEUTICALS, INC.-US-2024AZR000462

PATIENT
  Age: 58 Year
  Sex: Male

DRUGS (1)
  1. TESTOSTERONE CYPIONATE [Suspect]
     Active Substance: TESTOSTERONE CYPIONATE
     Indication: Blood testosterone decreased
     Dosage: 1 ML, EVERY TWO WEEKS
     Route: 030
     Dates: start: 20240202

REACTIONS (2)
  - Product dose omission issue [Unknown]
  - Product deposit [Unknown]

NARRATIVE: CASE EVENT DATE: 20240401
